FAERS Safety Report 13689297 (Version 1)
Quarter: 2017Q2

REPORT INFORMATION
  Report Type: Spontaneous
  Country: CH (occurrence: CH)
  Receive Date: 20170626
  Receipt Date: 20170626
  Transmission Date: 20170830
  Serious: Yes (Other)
  Sender: FDA-Public Use
  Company Number: CH-LPDUSPRD-20170774

PATIENT
  Age: 16 Year
  Sex: Female

DRUGS (2)
  1. FERINJECT [Suspect]
     Active Substance: FERRIC CARBOXYMALTOSE
     Dosage: 500 MG
     Route: 041
     Dates: start: 20170209, end: 20170209
  2. ELYFEM [Concomitant]

REACTIONS (6)
  - Infusion site discolouration [Unknown]
  - Application site swelling [Unknown]
  - Product preparation error [Unknown]
  - Pain in extremity [Unknown]
  - Dysaesthesia [Unknown]
  - Extravasation [Unknown]

NARRATIVE: CASE EVENT DATE: 20170209
